FAERS Safety Report 20940804 (Version 1)
Quarter: 2022Q2

REPORT INFORMATION
  Report Type: Report from Study
  Country: US (occurrence: US)
  Receive Date: 20220609
  Receipt Date: 20220609
  Transmission Date: 20220721
  Serious: No
  Sender: FDA-Public Use
  Company Number: US-NOVARTISTESTPH-NVSC2022US128739

PATIENT

DRUGS (1)
  1. PIQRAY [Suspect]
     Active Substance: ALPELISIB
     Indication: Product used for unknown indication
     Dosage: 300 MG, QD (TAKE 300 MG (TWO 150 MG TABLETS) BY MOUTH DAILY. TAKE WHOLE WITH WATER AND FOOD, AT THE
     Route: 048

REACTIONS (1)
  - General physical health deterioration [Unknown]
